FAERS Safety Report 4619343-1 (Version None)
Quarter: 2005Q1

REPORT INFORMATION
  Report Type: 
  Country: None (occurrence: None)
  Receive Date: 20050325
  Receipt Date: 20050302
  Transmission Date: 20050727
  Serious: Yes (Life-Threatening, Hospitalization, Disabling)
  Sender: FDA-Public Use
  Company Number: US-MERCK-0503USA00307

PATIENT
  Age: 81 Year
  Sex: Female

DRUGS (6)
  1. VIOXX [Suspect]
     Indication: ARTHRITIS
     Route: 048
     Dates: start: 20030715
  2. LEVOXYL [Concomitant]
     Route: 065
  3. LEXAPRO [Concomitant]
     Route: 065
  4. ACTONEL [Concomitant]
     Route: 065
  5. NORVASC [Concomitant]
     Route: 065
  6. GLUCOTROL [Concomitant]
     Route: 065

REACTIONS (3)
  - BELLIGERENCE [None]
  - DIABETES MELLITUS [None]
  - MYOCARDIAL INFARCTION [None]
